FAERS Safety Report 4585628-0 (Version None)
Quarter: 2005Q1

REPORT INFORMATION
  Report Type: 
  Country: None (occurrence: None)
  Receive Date: 20050214
  Receipt Date: 20050131
  Transmission Date: 20050727
  Serious: Yes (Hospitalization)
  Sender: FDA-Public Use
  Company Number: 2005024080

PATIENT
  Age: 83 Year
  Sex: Female

DRUGS (11)
  1. FLUCONAZOLE [Suspect]
     Indication: ILL-DEFINED DISORDER
     Dosage: 1 IN 1 D, ORAL
     Route: 048
     Dates: start: 20041127, end: 20041230
  2. TAHOR (ATORVASTATIN) [Suspect]
     Indication: ILL-DEFINED DISORDER
     Dosage: 40 MG (1 D), ORAL
     Route: 048
     Dates: end: 20041225
  3. CAPOZIDE 25/15 [Suspect]
     Indication: ILL-DEFINED DISORDER
     Dosage: 1 IN 1 D, ORAL
     Route: 048
     Dates: end: 20041215
  4. TRAMADOL HCL [Suspect]
     Indication: ILL-DEFINED DISORDER
     Dosage: ORAL
     Route: 048
     Dates: start: 20041129, end: 20041230
  5. PERINDOPRIL (PERINDOPRIL) [Suspect]
     Indication: ILL-DEFINED DISORDER
     Dosage: 2 MG (2 MG, 1 IN 1 D), ORAL
     Route: 048
     Dates: start: 20041215, end: 20041230
  6. INSULIN [Concomitant]
  7. PARAFFIN, LIQUID (PARAFFIN, LIQUID) [Concomitant]
  8. LACTULOSE [Concomitant]
  9. NAFTIDROFURYL OXALATE (NAFTIDROFURYL OXALATE) [Concomitant]
  10. BISOPROLOL FUMARATE [Concomitant]
  11. OMEPRAZOLE [Concomitant]

REACTIONS (8)
  - BLOOD CREATININE DECREASED [None]
  - ESCHAR [None]
  - HYPERKALAEMIA [None]
  - HYPONATRAEMIA [None]
  - METABOLIC DISORDER [None]
  - RESPIRATORY TRACT INFECTION [None]
  - SUPERINFECTION [None]
  - URINARY TRACT INFECTION [None]
